FAERS Safety Report 9158159 (Version 1)
Quarter: 2013Q1

REPORT INFORMATION
  Report Type: Spontaneous
  Country: US (occurrence: US)
  Receive Date: 20130312
  Receipt Date: 20130312
  Transmission Date: 20140127
  Serious: Yes (Other)
  Sender: FDA-Public Use
  Company Number: US-B.I. PHARMACEUTICALS,INC./RIDGEFIELD-2013-BI-06395GD

PATIENT
  Age: 78 Year
  Sex: Male

DRUGS (7)
  1. BISACODYL [Suspect]
     Indication: BOWEL PREPARATION
     Dosage: 20 MG
     Route: 048
  2. MIRALAX [Suspect]
     Indication: BOWEL PREPARATION
     Dosage: 238 G
     Route: 048
  3. HYDROCHLOROTHIAZIDE [Suspect]
  4. GATORADE [Suspect]
     Indication: BOWEL PREPARATION
     Dosage: 64 OZ (CONTAINING MIRALAX)
     Route: 048
  5. LOVASTATIN [Concomitant]
  6. ASPIRIN [Concomitant]
  7. DOXYCYCLINE [Concomitant]

REACTIONS (10)
  - Electrolyte imbalance [Recovered/Resolved]
  - Hyponatraemia [Recovered/Resolved]
  - Hypokalaemia [Recovered/Resolved]
  - Nausea [Unknown]
  - Vomiting [Unknown]
  - Haematemesis [Unknown]
  - Abdominal discomfort [Unknown]
  - Gastroduodenitis [Unknown]
  - Diverticulum intestinal [Unknown]
  - Erosive oesophagitis [Unknown]
